FAERS Safety Report 14758582 (Version 2)
Quarter: 2018Q4

REPORT INFORMATION
  Report Type: Spontaneous
  Country: CA (occurrence: CA)
  Receive Date: 20180413
  Receipt Date: 20181024
  Transmission Date: 20190204
  Serious: Yes (Death)
  Sender: FDA-Public Use
  Company Number: CA-PFIZER INC-2017352964

PATIENT
  Age: 62 Year
  Sex: Male

DRUGS (2)
  1. SUTENT [Suspect]
     Active Substance: SUNITINIB MALATE
     Dosage: 25 MG CYCLIC FOR 2 WEEKS
     Route: 048
     Dates: end: 20171102
  2. SUTENT [Suspect]
     Active Substance: SUNITINIB MALATE
     Indication: RENAL CANCER
     Dosage: 50 MG, CYCLIC (DAILY; 2 WEEKS ON AND 1 WEEK OFF)
     Route: 048
     Dates: start: 201705

REACTIONS (2)
  - Neoplasm progression [Fatal]
  - Rash [Unknown]

NARRATIVE: CASE EVENT DATE: 20171220
